FAERS Safety Report 17183739 (Version 1)
Quarter: 2019Q4

REPORT INFORMATION
  Report Type: Report from Study
  Country: RU (occurrence: RU)
  Receive Date: 20191220
  Receipt Date: 20191220
  Transmission Date: 20200122
  Serious: Yes (Hospitalization, Other)
  Sender: FDA-Public Use
  Company Number: RU-ASTRAZENECA-2019SF81947

PATIENT
  Age: 34 Year
  Sex: Male
  Weight: 80 kg

DRUGS (8)
  1. LIPRIMAR [Concomitant]
     Active Substance: ATORVASTATIN CALCIUM
  2. BRILINTA [Suspect]
     Active Substance: TICAGRELOR
     Indication: MYOCARDIAL INFARCTION
     Route: 048
     Dates: start: 20190601
  3. CARDIOMAGNYL [Concomitant]
     Active Substance: ASPIRIN\MAGNESIUM HYDROXIDE
  4. EZETROL [Concomitant]
     Active Substance: EZETIMIBE
  5. CONCOR [Concomitant]
     Active Substance: BISOPROLOL FUMARATE
  6. BRILINTA [Suspect]
     Active Substance: TICAGRELOR
     Indication: STENT PLACEMENT
     Route: 048
     Dates: start: 20190601
  7. CRESTOR [Concomitant]
     Active Substance: ROSUVASTATIN CALCIUM
  8. PRESTARIUM [Concomitant]
     Active Substance: PERINDOPRIL

REACTIONS (1)
  - Vascular stent occlusion [Recovered/Resolved]
